FAERS Safety Report 10056064 (Version 2)
Quarter: 2014Q2

REPORT INFORMATION
  Report Type: Spontaneous
  Country: US (occurrence: US)
  Receive Date: 20140403
  Receipt Date: 20140424
  Transmission Date: 20141212
  Serious: Yes (Other)
  Sender: FDA-Public Use
  Company Number: US-SA-2014SA041496

PATIENT
  Age: 75 Year
  Sex: Male

DRUGS (2)
  1. MULTAQ [Suspect]
     Indication: ATRIAL FIBRILLATION
     Route: 048
     Dates: start: 201304
  2. IPRATROPIUM [Concomitant]
     Indication: DYSPNOEA

REACTIONS (7)
  - Sleep apnoea syndrome [Not Recovered/Not Resolved]
  - Middle insomnia [Not Recovered/Not Resolved]
  - Muscular weakness [Not Recovered/Not Resolved]
  - Hypersomnia [Not Recovered/Not Resolved]
  - Parasomnia [Not Recovered/Not Resolved]
  - Abnormal dreams [Not Recovered/Not Resolved]
  - Dyspnoea [Not Recovered/Not Resolved]
